FAERS Safety Report 8592928-6 (Version None)
Quarter: 2012Q3

REPORT INFORMATION
  Report Type: 
  Country: None (occurrence: None)
  Receive Date: 20120814
  Receipt Date: 20120801
  Transmission Date: 20120928
  Serious: Yes (Other)
  Sender: FDA-Public Use
  Company Number: PL-ROCHE-1075673

PATIENT
  Sex: Male

DRUGS (4)
  1. PLAVIX [Concomitant]
     Indication: INFARCTION
     Dates: start: 20111001
  2. METOPROLOL SUCCINATE [Concomitant]
     Indication: HYPERTENSION
     Route: 048
     Dates: start: 20100101
  3. AVASTIN [Suspect]
     Indication: RENAL CELL CARCINOMA
     Route: 042
     Dates: start: 20081031, end: 20110919
  4. ASPIRIN [Concomitant]
     Indication: INFARCTION
     Dates: start: 20111001

REACTIONS (3)
  - PULMONARY NECROSIS [None]
  - BRONCHIAL FISTULA [None]
  - MYOCARDIAL INFARCTION [None]
